FAERS Safety Report 9437435 (Version 1)
Quarter: 2013Q3

REPORT INFORMATION
  Report Type: Spontaneous
  Country: NO (occurrence: NO)
  Receive Date: 20130802
  Receipt Date: 20130802
  Transmission Date: 20140515
  Serious: Yes (Death, Hospitalization, Other)
  Sender: FDA-Public Use
  Company Number: NO-MYLANLABS-2013S1016173

PATIENT
  Age: 65 Year
  Sex: Male

DRUGS (4)
  1. CLOPIDOGREL [Suspect]
     Indication: MYOCARDIAL INFARCTION
     Dosage: OFF-LABEL CLOPIDOGREL FOR 4 YEARS, INCLUDING A DOUBLE DAILY DOSE (150 MG)
  2. CLOPIDOGREL [Suspect]
     Indication: MYOCARDIAL INFARCTION
  3. PRASUGREL [Suspect]
     Indication: PRODUCT USED FOR UNKNOWN INDICATION
  4. ASPIRIN [Suspect]
     Indication: PRODUCT USED FOR UNKNOWN INDICATION

REACTIONS (12)
  - Blindness [Fatal]
  - Confusional state [Fatal]
  - Off label use [Fatal]
  - Dyspnoea [Fatal]
  - Disorientation [Fatal]
  - Dizziness [Fatal]
  - Sepsis [Fatal]
  - Headache [Fatal]
  - Petechiae [Fatal]
  - Organ failure [Fatal]
  - Systemic inflammatory response syndrome [Fatal]
  - Asthenia [Fatal]
